FAERS Safety Report 4473788-1 (Version None)
Quarter: 2004Q4

REPORT INFORMATION
  Report Type: 
  Country: None (occurrence: None)
  Receive Date: 20040907
  Receipt Date: 20040503
  Transmission Date: 20050328
  Serious: Yes (Other)
  Sender: FDA-Public Use
  Company Number: PHEH2004US04920

PATIENT
  Age: 65 Year
  Sex: Male

DRUGS (3)
  1. NEORAL [Suspect]
     Indication: LIVER TRANSPLANT
     Dosage: 125 MG, BID, ORAL
     Route: 048
     Dates: start: 19960201
  2. HEPSERA [Suspect]
     Dosage: 10 MG, QD, ORAL
     Route: 048
     Dates: start: 20031021
  3. FAMVIR [Concomitant]

REACTIONS (10)
  - ALANINE AMINOTRANSFERASE INCREASED [None]
  - ASPARTATE AMINOTRANSFERASE INCREASED [None]
  - BIOPSY LIVER ABNORMAL [None]
  - BLOOD ALKALINE PHOSPHATASE INCREASED [None]
  - DRUG INTERACTION [None]
  - DRUG LEVEL DECREASED [None]
  - GAMMA-GLUTAMYLTRANSFERASE INCREASED [None]
  - HEPATITIS B [None]
  - HEPATITIS B ANTIBODY [None]
  - TRANSPLANT REJECTION [None]
